FAERS Safety Report 11787366 (Version 2)
Quarter: 2015Q4

REPORT INFORMATION
  Report Type: Spontaneous
  Country: US (occurrence: US)
  Receive Date: 20151130
  Receipt Date: 20151228
  Transmission Date: 20160305
  Serious: No
  Sender: FDA-Public Use
  Company Number: US-PFIZER INC-2015394817

PATIENT
  Age: 64 Year
  Sex: Female

DRUGS (1)
  1. IBRANCE [Suspect]
     Active Substance: PALBOCICLIB
     Indication: NEOPLASM MALIGNANT
     Dosage: 100 MG, CYCLIC (Q 21 DAYS, 7 DAYS OFF)
     Dates: start: 20151022, end: 20151215

REACTIONS (3)
  - Neoplasm malignant [Unknown]
  - Hepatic enzyme increased [Unknown]
  - Disease progression [Unknown]

NARRATIVE: CASE EVENT DATE: 201511
